FAERS Safety Report 25879177 (Version 1)
Quarter: 2025Q4

REPORT INFORMATION
  Report Type: Spontaneous
  Country: EU (occurrence: EU)
  Receive Date: 20251003
  Receipt Date: 20251003
  Transmission Date: 20260118
  Serious: Yes (Other)
  Sender: MYLAN
  Company Number: None

PATIENT
  Age: 22 Year
  Sex: Female

DRUGS (8)
  1. PREGABALIN [Suspect]
     Active Substance: PREGABALIN
     Indication: Product used for unknown indication
     Dosage: 1050 MILLIGRAM
     Dates: start: 20211112, end: 20211112
  2. PREGABALIN [Suspect]
     Active Substance: PREGABALIN
     Dosage: 1050 MILLIGRAM
     Route: 065
     Dates: start: 20211112, end: 20211112
  3. PREGABALIN [Suspect]
     Active Substance: PREGABALIN
     Dosage: 1050 MILLIGRAM
     Route: 065
     Dates: start: 20211112, end: 20211112
  4. PREGABALIN [Suspect]
     Active Substance: PREGABALIN
     Dosage: 1050 MILLIGRAM
     Dates: start: 20211112, end: 20211112
  5. FLUOXETINE HYDROCHLORIDE [Suspect]
     Active Substance: FLUOXETINE HYDROCHLORIDE
     Indication: Product used for unknown indication
     Dosage: 600 MILLIGRAM
     Dates: start: 20211112, end: 20211112
  6. FLUOXETINE HYDROCHLORIDE [Suspect]
     Active Substance: FLUOXETINE HYDROCHLORIDE
     Dosage: 600 MILLIGRAM
     Route: 065
     Dates: start: 20211112, end: 20211112
  7. FLUOXETINE HYDROCHLORIDE [Suspect]
     Active Substance: FLUOXETINE HYDROCHLORIDE
     Dosage: 600 MILLIGRAM
     Route: 065
     Dates: start: 20211112, end: 20211112
  8. FLUOXETINE HYDROCHLORIDE [Suspect]
     Active Substance: FLUOXETINE HYDROCHLORIDE
     Dosage: 600 MILLIGRAM
     Dates: start: 20211112, end: 20211112

REACTIONS (3)
  - Suicide attempt [Unknown]
  - Toxicity to various agents [Unknown]
  - No adverse event [Unknown]

NARRATIVE: CASE EVENT DATE: 20211112
